FAERS Safety Report 25290998 (Version 1)
Quarter: 2025Q2

REPORT INFORMATION
  Report Type: Spontaneous
  Country: US (occurrence: US)
  Receive Date: 20250510
  Receipt Date: 20250510
  Transmission Date: 20250716
  Serious: No
  Sender: SANOFI AVENTIS
  Company Number: US-SA-2025SA071571

PATIENT
  Age: 53 Year
  Sex: Female

DRUGS (8)
  1. DUPIXENT [Suspect]
     Active Substance: DUPILUMAB
     Indication: Asthma
     Dosage: 300 MG, QOW
     Route: 058
     Dates: start: 20250212
  2. CITALOPRAM [Concomitant]
     Active Substance: CITALOPRAM
  3. PANTOPRAZOLE [Concomitant]
     Active Substance: PANTOPRAZOLE
  4. PREDNISONE [Concomitant]
     Active Substance: PREDNISONE
  5. SUCRALFATE [Concomitant]
     Active Substance: SUCRALFATE
  6. FLUTICASONE [Concomitant]
     Active Substance: FLUTICASONE
  7. LOSARTAN POTASSIUM [Concomitant]
     Active Substance: LOSARTAN POTASSIUM
  8. TRELEGY ELLIPTA [Concomitant]
     Active Substance: FLUTICASONE FUROATE\UMECLIDINIUM BROMIDE\VILANTEROL TRIFENATATE

REACTIONS (2)
  - Impaired quality of life [Unknown]
  - Asthma [Unknown]

NARRATIVE: CASE EVENT DATE: 20250101
